FAERS Safety Report 10026788 (Version 1)
Quarter: 2014Q1

REPORT INFORMATION
  Report Type: Spontaneous
  Country: US (occurrence: US)
  Receive Date: 20140321
  Receipt Date: 20140321
  Transmission Date: 20141002
  Serious: Yes (Other)
  Sender: FDA-Public Use
  Company Number: US-ASTRAZENECA-2014SE18218

PATIENT
  Sex: Male

DRUGS (3)
  1. BRILINTA [Suspect]
     Indication: ACUTE CORONARY SYNDROME
     Dosage: LOADING DOSE
     Route: 048
     Dates: start: 201403
  2. ASPIRIN [Concomitant]
     Dosage: LOADING
     Dates: start: 201403
  3. ANGIOMAX [Concomitant]
     Dates: start: 201403

REACTIONS (2)
  - Pain [Unknown]
  - Coronary artery thrombosis [Unknown]
